FAERS Safety Report 9167988 (Version 2)
Quarter: 2013Q1

REPORT INFORMATION
  Report Type: Spontaneous
  Country: DE (occurrence: None)
  Receive Date: 20130307
  Receipt Date: 20130308
  Transmission Date: 20140127
  Serious: Yes (Death, Life-Threatening, Hospitalization)
  Sender: FDA-Public Use
  Company Number: DE-JNJFOC-20130208568

PATIENT
  Age: 77 Year
  Sex: Female
  Weight: 77 kg

DRUGS (8)
  1. DACOGEN [Suspect]
     Indication: ACUTE MYELOID LEUKAEMIA
     Dosage: IN 1 DAY
     Route: 042
     Dates: start: 20130121, end: 20130125
  2. VALPROIC ACID [Suspect]
     Indication: ACUTE MYELOID LEUKAEMIA
     Dates: start: 20130126, end: 201302
  3. RETINOIC ACID [Suspect]
     Indication: ACUTE MYELOID LEUKAEMIA
     Dates: start: 20130126, end: 20130215
  4. ACICLOVIR (ACICLOVIR) UNSPECIFIED [Concomitant]
  5. COTRIM FORTE (BACTRIM UNSPECIFIED) [Concomitant]
  6. L-THYROXIN (LEVOTHYROXINE SODIUM) UNSPECIFIED [Concomitant]
  7. DELIX (RAMIPRIL) UNSPECIFIED [Concomitant]
  8. SEROQUEL (QUETIAPINE) UNSPECIFIED [Concomitant]

REACTIONS (5)
  - Haemolytic anaemia [None]
  - Somnolence [None]
  - Infection [None]
  - Escherichia test positive [None]
  - Cerebral haemorrhage [None]
